FAERS Safety Report 8694522 (Version 2)
Quarter: 2013Q1

REPORT INFORMATION
  Report Type: Spontaneous
  Country: US (occurrence: US)
  Receive Date: 20120731
  Receipt Date: 20130318
  Transmission Date: 20140127
  Serious: Yes (Hospitalization, Other)
  Sender: FDA-Public Use
  Company Number: US-PFIZER INC-2012180647

PATIENT
  Age: 46 Year
  Sex: Female
  Weight: 90.7 kg

DRUGS (6)
  1. LYRICA [Suspect]
     Indication: NEUROPATHY PERIPHERAL
     Dosage: 150 MG IN MORNING AND 300MG AT NIGHT
     Route: 048
  2. LYRICA [Suspect]
     Indication: FIBROMYALGIA
     Dosage: 150 MG, 3X/DAY
  3. TORSEMIDE [Suspect]
     Indication: BLOOD PRESSURE ABNORMAL
     Dosage: 20 MG DAILY
  4. CALAN SR [Concomitant]
     Indication: HYPERTENSION
     Dosage: 240 MG DAILY
  5. MAGNESIUM [Concomitant]
     Indication: BLOOD MAGNESIUM DECREASED
     Dosage: 400 MG, 2X/DAY
  6. HYDROCODONE [Concomitant]
     Indication: PAIN
     Dosage: ^10/325^, 3X/DAY

REACTIONS (14)
  - Pneumonia [Unknown]
  - Liver disorder [Unknown]
  - Liver injury [Unknown]
  - Traumatic lung injury [Unknown]
  - Accident [Unknown]
  - Gallbladder injury [Unknown]
  - Gallbladder disorder [Unknown]
  - Chronic obstructive pulmonary disease [Unknown]
  - Blood potassium decreased [Unknown]
  - Low density lipoprotein increased [Unknown]
  - Drug dose omission [Unknown]
  - Nervousness [Not Recovered/Not Resolved]
  - Nausea [Not Recovered/Not Resolved]
  - Decreased appetite [Unknown]
